FAERS Safety Report 8605941-7 (Version None)
Quarter: 2012Q3

REPORT INFORMATION
  Report Type: 
  Country: None (occurrence: None)
  Receive Date: 20120807
  Receipt Date: 20120730
  Transmission Date: 20120928
  Serious: Yes (Death, Hospitalization, Other)
  Sender: FDA-Public Use
  Company Number: AUR-APL-2012-03177

PATIENT
  Age: 78 Year
  Sex: Female

DRUGS (3)
  1. METFFORMIN HYDROCHLORIDE [Suspect]
     Indication: PRODUCT USED FOR UNKNOWN INDICATION
     Dosage: 3G/DAY
  2. DIGOXIN [Concomitant]
  3. WARFARIN SODIUM [Concomitant]

REACTIONS (7)
  - BRADYCARDIA [None]
  - ATRIAL FIBRILLATION [None]
  - LACTIC ACIDOSIS [None]
  - CARDIAC FAILURE ACUTE [None]
  - RENAL IMPAIRMENT [None]
  - HAEMODIALYSIS [None]
  - NODAL RHYTHM [None]
